FAERS Safety Report 4462900-6 (Version None)
Quarter: 2004Q3

REPORT INFORMATION
  Report Type: 
  Country: None (occurrence: None)
  Receive Date: 20040927
  Receipt Date: 20040916
  Transmission Date: 20050211
  Serious: Yes (Other)
  Sender: FDA-Public Use
  Company Number: 2004-09-1309

PATIENT
  Sex: Male

DRUGS (2)
  1. VIRAFERON (INTERFERON ALFA-2B) INJECTABLE (LIKE INTRON) [Suspect]
     Indication: HEPATITIS C
  2. REBETOL [Suspect]
     Indication: HEPATITIS C
     Dosage: ORAL
     Route: 048

REACTIONS (4)
  - DEPRESSION [None]
  - DIARRHOEA [None]
  - ONYCHOMADESIS [None]
  - PSORIATIC ARTHROPATHY [None]
